FAERS Safety Report 6749549-7 (Version None)
Quarter: 2010Q2

REPORT INFORMATION
  Report Type: 
  Country: None (occurrence: None)
  Receive Date: 20100601
  Receipt Date: 20100524
  Transmission Date: 20101027
  Serious: Yes (Hospitalization)
  Sender: FDA-Public Use
  Company Number: US-GILEAD-2010-0029400

PATIENT
  Sex: Female

DRUGS (15)
  1. LETAIRIS [Suspect]
     Indication: PULMONARY ARTERIAL HYPERTENSION
     Route: 048
     Dates: start: 20080109
  2. ADCIRCA [Concomitant]
  3. LASIX [Concomitant]
  4. SPIRONOLACTONE [Concomitant]
  5. LOPRESSOR [Concomitant]
  6. FOSAMAX [Concomitant]
  7. EFFEXOR [Concomitant]
  8. LIPITOR [Concomitant]
  9. LYRICA [Concomitant]
  10. PERCOCET [Concomitant]
  11. PRILOSEC [Concomitant]
  12. OXYCONTIN [Concomitant]
  13. FENOFIBRATE [Concomitant]
  14. SUCRALFATE [Concomitant]
  15. K-DUR [Concomitant]

REACTIONS (2)
  - CHEST PAIN [None]
  - DYSPNOEA [None]
